FAERS Safety Report 17588653 (Version 2)
Quarter: 2020Q1

REPORT INFORMATION
  Report Type: Spontaneous
  Country: US (occurrence: US)
  Receive Date: 20200327
  Receipt Date: 20200330
  Transmission Date: 20200409
  Serious: Yes (Other)
  Sender: FDA-Public Use
  Company Number: US-UNITED THERAPEUTICS-UNT-2020-003592

PATIENT
  Age: 49 Year
  Sex: Female
  Weight: 71.93 kg

DRUGS (2)
  1. REMODULIN [Suspect]
     Active Substance: TREPROSTINIL
     Dosage: 0.015 ?G/KG, CONTINUING
     Route: 058
  2. REMODULIN [Suspect]
     Active Substance: TREPROSTINIL
     Indication: PULMONARY ARTERIAL HYPERTENSION
     Dosage: 0.01 ?G/KG, CONTINUING
     Route: 058
     Dates: start: 20200214

REACTIONS (7)
  - Productive cough [Unknown]
  - Sputum discoloured [Unknown]
  - Limb discomfort [Unknown]
  - Pulmonary embolism [Unknown]
  - Dyspnoea [Unknown]
  - Chest pain [Unknown]
  - Headache [Unknown]

NARRATIVE: CASE EVENT DATE: 202002
